FAERS Safety Report 8123589-8 (Version None)
Quarter: 2012Q1

REPORT INFORMATION
  Report Type: 
  Country: None (occurrence: None)
  Receive Date: 20120208
  Receipt Date: 20120201
  Transmission Date: 20120608
  Serious: Yes (Hospitalization)
  Sender: FDA-Public Use
  Company Number: PHHY2012AR008928

PATIENT
  Sex: Female

DRUGS (1)
  1. DIOVAN [Suspect]
     Indication: HYPERTENSION
     Dosage: 80 MG, DAILY

REACTIONS (5)
  - EYE DISORDER [None]
  - FALL [None]
  - VISUAL IMPAIRMENT [None]
  - FACIAL BONES FRACTURE [None]
  - EYE PAIN [None]
